FAERS Safety Report 6746161-0 (Version None)
Quarter: 2010Q2

REPORT INFORMATION
  Report Type: 
  Country: None (occurrence: None)
  Receive Date: 20100528
  Receipt Date: 20091013
  Transmission Date: 20101027
  Serious: No
  Sender: FDA-Public Use
  Company Number: US-ASTRAZENECA-2009SE19761

PATIENT
  Age: 59 Year
  Sex: Female
  Weight: 70.3 kg

DRUGS (10)
  1. PRILOSEC [Suspect]
     Indication: GASTROOESOPHAGEAL REFLUX DISEASE
     Route: 048
  2. NEXIUM [Concomitant]
  3. ATIVAN [Concomitant]
  4. RISPERDAL [Concomitant]
  5. SIMVASTATIN [Concomitant]
  6. ASPIRIN [Concomitant]
  7. FLAX SEED OIL [Concomitant]
  8. ZYRTEC [Concomitant]
  9. TYLENOL PRN [Concomitant]
  10. LEXAPRO [Concomitant]

REACTIONS (2)
  - DRUG INEFFECTIVE [None]
  - SYNCOPE [None]
